FAERS Safety Report 6127231-7 (Version None)
Quarter: 2009Q1

REPORT INFORMATION
  Report Type: 
  Country: None (occurrence: None)
  Receive Date: 20090320
  Receipt Date: 20090306
  Transmission Date: 20090719
  Serious: Yes (Hospitalization)
  Sender: FDA-Public Use
  Company Number: US-GENENTECH-279289

PATIENT
  Sex: Female

DRUGS (10)
  1. BEVACIZUMAB [Suspect]
     Indication: NEOPLASM MALIGNANT
     Dosage: 10 MG/KG, UNK
     Dates: start: 20090206, end: 20090209
  2. RO4858696 INVESTIGATIONAL IGF-1R ANTAGONIST [Suspect]
     Indication: NEOPLASM MALIGNANT
     Dosage: 5 MG/KG, UNK
     Route: 042
     Dates: start: 20090206, end: 20090209
  3. PACLITAXEL [Suspect]
     Indication: NEOPLASM MALIGNANT
     Dosage: 90 MG/M2, UNK
     Route: 042
     Dates: start: 20090206, end: 20090209
  4. ATARAX [Concomitant]
     Indication: DRUG USE FOR UNKNOWN INDICATION
     Dosage: UNK
     Dates: start: 20090220
  5. BENADRYL [Concomitant]
     Indication: DRUG USE FOR UNKNOWN INDICATION
     Dosage: UNK
     Dates: start: 20080728
  6. CELEXA [Concomitant]
     Indication: DRUG USE FOR UNKNOWN INDICATION
     Dosage: UNK
     Dates: start: 20080228
  7. CREON [Concomitant]
     Indication: DRUG USE FOR UNKNOWN INDICATION
     Dosage: UNK
     Dates: start: 20080228
  8. METOCLOPRAMIDE [Concomitant]
     Indication: DRUG USE FOR UNKNOWN INDICATION
     Dosage: UNK
     Dates: start: 20090206
  9. MIRALAX [Concomitant]
     Indication: DRUG USE FOR UNKNOWN INDICATION
     Dosage: UNK
     Dates: start: 20080804
  10. MORPHINE SULFATE [Concomitant]
     Indication: DRUG USE FOR UNKNOWN INDICATION
     Dosage: UNK
     Dates: start: 20090206

REACTIONS (2)
  - HYPERBILIRUBINAEMIA [None]
  - THROMBOSIS [None]
